FAERS Safety Report 8895630 (Version 1)
Quarter: 2012Q4

REPORT INFORMATION
  Report Type: 
  Country: US (occurrence: US)
  Receive Date: 20121108
  Receipt Date: 20121108
  Transmission Date: 20130627
  Serious: Yes (Death)
  Sender: FDA-Public Use
  Company Number: US-ROCHE-1153342

PATIENT

DRUGS (2)
  1. BEVACIZUMAB [Suspect]
     Indication: HEAD AND NECK CANCER
     Route: 065
  2. CISPLATIN [Suspect]
     Indication: HEAD AND NECK CANCER
     Route: 065

REACTIONS (1)
  - Pneumonia aspiration [Fatal]
